FAERS Safety Report 7966507-5 (Version None)
Quarter: 2011Q4

REPORT INFORMATION
  Report Type: 
  Country: None (occurrence: None)
  Receive Date: 20111208
  Receipt Date: 20111205
  Transmission Date: 20120403
  Serious: Yes (Hospitalization)
  Sender: FDA-Public Use
  Company Number: FR-MERCK-1112FRA00022

PATIENT
  Age: 38 Year
  Sex: Male

DRUGS (4)
  1. ETRAVIRINE [Suspect]
     Indication: HIV INFECTION
     Route: 048
     Dates: start: 20101129
  2. LAMIVUDINE [Suspect]
     Indication: HIV INFECTION
     Route: 048
     Dates: start: 20101129
  3. MARAVIROC [Concomitant]
     Indication: HIV INFECTION
     Route: 048
  4. ISENTRESS [Suspect]
     Indication: HIV INFECTION
     Route: 048
     Dates: start: 20101129

REACTIONS (3)
  - ERYTHEMA [None]
  - PRESYNCOPE [None]
  - PHOTOSENSITIVITY REACTION [None]
